FAERS Safety Report 13660942 (Version 3)
Quarter: 2017Q3

REPORT INFORMATION
  Report Type: Spontaneous
  Country: US (occurrence: US)
  Receive Date: 20170616
  Receipt Date: 20170831
  Transmission Date: 20171127
  Serious: Yes (Hospitalization)
  Sender: FDA-Public Use
  Company Number: US-LUNDBECK-DKLU2032698

PATIENT
  Age: 38 Year
  Sex: Female

DRUGS (2)
  1. NORTHERA [Suspect]
     Active Substance: DROXIDOPA
     Indication: AUTONOMIC NEUROPATHY
     Dosage: TITRATION COMPLETE/SCHEDULE C
     Route: 048
     Dates: start: 20170503
  2. NORTHERA [Suspect]
     Active Substance: DROXIDOPA
     Indication: AUTONOMIC FAILURE SYNDROME

REACTIONS (11)
  - Abdominal distension [Unknown]
  - Hypohidrosis [Unknown]
  - Tremor [Unknown]
  - Dry mouth [Unknown]
  - Dry eye [Unknown]
  - Nausea [Unknown]
  - Blood pressure decreased [Unknown]
  - Syncope [Unknown]
  - Orthostatic hypotension [Unknown]
  - Constipation [Unknown]
  - Early satiety [Unknown]

NARRATIVE: CASE EVENT DATE: 20170606
